FAERS Safety Report 8038082-0 (Version None)
Quarter: 2012Q1

REPORT INFORMATION
  Report Type: 
  Country: None (occurrence: None)
  Receive Date: 20120111
  Receipt Date: 20120110
  Transmission Date: 20120608
  Serious: Yes (Hospitalization)
  Sender: FDA-Public Use
  Company Number: US-MERCK-1112USA01629

PATIENT
  Age: 83 Year
  Sex: Male
  Weight: 94 kg

DRUGS (13)
  1. LUPRON [Concomitant]
     Route: 065
  2. PRINIVIL [Suspect]
     Route: 048
     Dates: start: 20111127, end: 20111127
  3. ATENOLOL [Concomitant]
     Route: 065
  4. SELENIUM (UNSPECIFIED) [Concomitant]
     Route: 065
  5. ASPIRIN [Concomitant]
     Route: 065
  6. AMLODIPINE [Concomitant]
     Route: 065
  7. FOLIC ACID [Concomitant]
     Route: 065
  8. PROVENGE [Suspect]
     Route: 042
     Dates: start: 20111114, end: 20111114
  9. CITRACAL + D [Concomitant]
     Route: 065
  10. ASACOL [Concomitant]
     Route: 065
  11. SPIRONOLACTONE [Suspect]
     Route: 065
     Dates: end: 20111127
  12. PROVENGE [Suspect]
     Indication: PROSTATE CANCER METASTATIC
     Route: 042
     Dates: start: 20111031, end: 20111031
  13. DENOSUMAB [Concomitant]
     Route: 065

REACTIONS (3)
  - ATRIAL FIBRILLATION [None]
  - HYPERKALAEMIA [None]
  - BACTERAEMIA [None]
